FAERS Safety Report 5663210-1 (Version None)
Quarter: 2008Q1

REPORT INFORMATION
  Report Type: 
  Country: None (occurrence: None)
  Receive Date: 20080313
  Receipt Date: 20080303
  Transmission Date: 20080703
  Serious: Yes (Other)
  Sender: FDA-Public Use
  Company Number: US-PFIZER INC-2008020060

PATIENT
  Sex: Female
  Weight: 96.6 kg

DRUGS (7)
  1. GEODON [Suspect]
     Indication: BIPOLAR DISORDER
  2. GEODON [Suspect]
     Indication: ANXIETY
  3. ALL OTHER THERAPEUTIC PRODUCTS [Concomitant]
  4. PREVACID [Concomitant]
  5. TOPAMAX [Concomitant]
  6. WELLBUTRIN [Concomitant]
  7. OTHER RESPIRATORY SYSTEM PRODUCTS [Concomitant]
     Route: 055

REACTIONS (5)
  - DIZZINESS [None]
  - INSOMNIA [None]
  - MEDICATION ERROR [None]
  - NAUSEA [None]
  - VOMITING [None]
